FAERS Safety Report 7302029-2 (Version None)
Quarter: 2011Q1

REPORT INFORMATION
  Report Type: 
  Country: None (occurrence: None)
  Receive Date: 20110218
  Receipt Date: 20110215
  Transmission Date: 20110831
  Serious: Yes (Other)
  Sender: FDA-Public Use
  Company Number: CH-PFIZER INC-2011033219

PATIENT
  Age: 36 Year
  Sex: Female
  Weight: 61 kg

DRUGS (2)
  1. ANDREAFOL [Concomitant]
     Dosage: 1 DF, 1X/DAY
     Route: 050
     Dates: start: 20100701
  2. ZOLOFT [Suspect]
     Indication: BIPOLAR I DISORDER
     Dosage: UNK
     Route: 048
     Dates: start: 20100101

REACTIONS (3)
  - ABORTION MISSED [None]
  - DEPRESSION [None]
  - PLACENTAL DISORDER [None]
